FAERS Safety Report 13428476 (Version 1)
Quarter: 2017Q2

REPORT INFORMATION
  Report Type: Spontaneous
  Country: US (occurrence: US)
  Receive Date: 20170411
  Receipt Date: 20170411
  Transmission Date: 20170830
  Serious: No
  Sender: FDA-Public Use
  Company Number: US-PERRIGO-16US016410

PATIENT
  Sex: Male

DRUGS (2)
  1. PSEUDOEPHEDRINE HYDROCHLORIDE. [Suspect]
     Active Substance: PSEUDOEPHEDRINE HYDROCHLORIDE
     Indication: SINUS HEADACHE
     Dosage: 120 MG, TWICE IN 3 HOURS
     Route: 048
     Dates: start: 20160517, end: 20160517
  2. PSEUDOEPHEDRINE HYDROCHLORIDE. [Suspect]
     Active Substance: PSEUDOEPHEDRINE HYDROCHLORIDE
     Indication: SINUS CONGESTION
     Dosage: 120 MG, EVERY 12 HOURS, PRN
     Route: 048
     Dates: start: 2013, end: 201602

REACTIONS (4)
  - Inappropriate schedule of drug administration [Recovered/Resolved]
  - Off label use [Recovered/Resolved]
  - Renal pain [Not Recovered/Not Resolved]
  - Back pain [Not Recovered/Not Resolved]

NARRATIVE: CASE EVENT DATE: 2013
